FAERS Safety Report 8157575-9 (Version None)
Quarter: 2012Q1

REPORT INFORMATION
  Report Type: 
  Country: None (occurrence: None)
  Receive Date: 20120222
  Receipt Date: 20111215
  Transmission Date: 20120608
  Serious: No
  Sender: FDA-Public Use
  Company Number: US-ASTRAZENECA-2011SE76435

PATIENT
  Age: 78 Year
  Sex: Male

DRUGS (14)
  1. PRINIVIL [Concomitant]
     Dates: start: 19961120
  2. VERAPIMIL [Concomitant]
     Dates: start: 19910108
  3. HYDROCHLOROTHIAZIDE [Concomitant]
     Dates: start: 19901119
  4. METOPROLO-TARTRATE [Concomitant]
     Dates: start: 19950511
  5. TENORMIN [Suspect]
     Route: 048
  6. LOPRESSOR [Concomitant]
     Dates: start: 19941215
  7. PROCARDIA [Concomitant]
     Dates: start: 19910107
  8. ZESTORETIC [Concomitant]
     Dosage: 10/125
     Route: 048
  9. CARDIZEM [Concomitant]
     Dates: start: 19910331
  10. DIOVAN [Concomitant]
     Dosage: 80 MG/ 160 MG
  11. VASOTEC [Concomitant]
     Dates: start: 19931108
  12. PLAVIX [Concomitant]
  13. HYDROCODONE [Concomitant]
     Dates: start: 19910419
  14. ZESTRIL/LISINOFRIL [Concomitant]
     Route: 048
     Dates: start: 19950612

REACTIONS (3)
  - ADVERSE DRUG REACTION [None]
  - DRUG INEFFECTIVE [None]
  - DRUG HYPERSENSITIVITY [None]
